FAERS Safety Report 9898886 (Version 2)
Quarter: 2014Q1

REPORT INFORMATION
  Report Type: Spontaneous
  Country: US (occurrence: US)
  Receive Date: 20140214
  Receipt Date: 20140214
  Transmission Date: 20141002
  Serious: Yes (Hospitalization)
  Sender: FDA-Public Use
  Company Number: US-GLAXOSMITHKLINE-A0789970A

PATIENT
  Age: 51 Year
  Sex: Male
  Weight: 149.1 kg

DRUGS (1)
  1. AVANDIA [Suspect]
     Indication: DIABETES MELLITUS
     Route: 048
     Dates: start: 200502, end: 200802

REACTIONS (8)
  - Cardiac disorder [Unknown]
  - Cardiovascular disorder [Unknown]
  - Transient ischaemic attack [Unknown]
  - Memory impairment [Unknown]
  - Amnesia [Unknown]
  - Speech disorder [Unknown]
  - Hemiparesis [Unknown]
  - Gait disturbance [Unknown]
